FAERS Safety Report 19191009 (Version 4)
Quarter: 2021Q2

REPORT INFORMATION
  Report Type: Report from Study
  Country: US (occurrence: US)
  Receive Date: 20210428
  Receipt Date: 20210519
  Transmission Date: 20210717
  Serious: Yes (Other)
  Sender: FDA-Public Use
  Company Number: US-ORGANON-O2104USA001593

PATIENT
  Sex: Female
  Weight: 78.4 kg

DRUGS (9)
  1. NEXPLANON [Suspect]
     Active Substance: ETONOGESTREL
     Dosage: 1 DOSAGE FORM
     Route: 058
     Dates: start: 20210414, end: 20210414
  2. METFORMIN HCL [Concomitant]
     Active Substance: METFORMIN HYDROCHLORIDE
     Dosage: 1 DOSAGE FORM, BID
  3. IMPLANON [Suspect]
     Active Substance: ETONOGESTREL
     Dosage: 1 IMPLANT (STRENGTH: 68 MILLIGRAM)
     Route: 059
     Dates: start: 20210414
  4. NORPLANT [Suspect]
     Active Substance: LEVONORGESTREL
     Dosage: 6 DOSAGE FORM
     Route: 058
  5. METFORMIN HCL [Concomitant]
     Active Substance: METFORMIN HYDROCHLORIDE
     Dosage: 1 DOSAGE FORM, BID
     Route: 048
  6. IMPLANON [Suspect]
     Active Substance: ETONOGESTREL
     Dosage: 1 IMPLANT, STRENGTH: 68 MILLIGRAM (START DATE REPORTED AS 20 YEARS AGO)
     Route: 059
     Dates: start: 2001
  7. ZETIA [Concomitant]
     Active Substance: EZETIMIBE
     Dosage: UNK, QD
     Route: 048
  8. ESCITALOPRAM OXALATE. [Concomitant]
     Active Substance: ESCITALOPRAM OXALATE
     Route: 048
  9. NITROFURANTOIN. [Concomitant]
     Active Substance: NITROFURANTOIN
     Dosage: 1 DOSAGE FORM, BID
     Route: 048

REACTIONS (5)
  - Inappropriate schedule of product administration [Unknown]
  - Unintended pregnancy [Recovered/Resolved]
  - Pregnancy with implant contraceptive [Recovered/Resolved]
  - Device dislocation [Recovered/Resolved]
  - Incorrect product administration duration [Unknown]
